FAERS Safety Report 21089413 (Version 3)
Quarter: 2022Q3

REPORT INFORMATION
  Report Type: Spontaneous
  Country: US (occurrence: None)
  Receive Date: 20220715
  Receipt Date: 20220818
  Transmission Date: 20221027
  Serious: Yes (Hospitalization, Other)
  Sender: FDA-Public Use
  Company Number: 2022A250151

PATIENT
  Age: 76 Year
  Sex: Male
  Weight: 64.9 kg

DRUGS (5)
  1. BREZTRI [Suspect]
     Active Substance: BUDESONIDE\FORMOTEROL\GLYCOPYRROLATE
     Indication: Chronic obstructive pulmonary disease
     Dosage: 160/9/4.8 UG, TWO PUFFS TWICE DAILY
     Route: 055
     Dates: start: 2020
  2. BREZTRI [Suspect]
     Active Substance: BUDESONIDE\FORMOTEROL\GLYCOPYRROLATE
     Indication: Chronic obstructive pulmonary disease
     Dosage: 160/9/4.8 UG, TWO PUFFS TWICE DAILY
     Route: 055
     Dates: start: 20220627, end: 20220703
  3. DUPIXENT [Concomitant]
     Active Substance: DUPILUMAB
     Indication: Skin disorder
  4. SOTALOL [Concomitant]
     Active Substance: SOTALOL
     Indication: Arrhythmia
  5. CLINDAMYCIN [Concomitant]
     Active Substance: CLINDAMYCIN
     Indication: Hypersensitivity

REACTIONS (16)
  - Blood sodium decreased [Not Recovered/Not Resolved]
  - Blood disorder [Recovered/Resolved]
  - Prostatomegaly [Unknown]
  - Gastric perforation [Recovered/Resolved]
  - Osteoporosis [Not Recovered/Not Resolved]
  - Spinal fracture [Recovered/Resolved]
  - Urinary tract infection [Unknown]
  - Muscle spasms [Recovered/Resolved]
  - Urinary retention [Unknown]
  - Wheezing [Recovered/Resolved]
  - Seasonal allergy [Unknown]
  - Sneezing [Recovered/Resolved]
  - Dyspnoea [Recovered/Resolved]
  - Product dose omission issue [Recovered/Resolved]
  - Wrong technique in device usage process [Not Recovered/Not Resolved]
  - Device malfunction [Recovered/Resolved]

NARRATIVE: CASE EVENT DATE: 20200101
